FAERS Safety Report 14623294 (Version 2)
Quarter: 2018Q2

REPORT INFORMATION
  Report Type: Report from Study
  Country: JP (occurrence: JP)
  Receive Date: 20180312
  Receipt Date: 20180508
  Transmission Date: 20180711
  Serious: Yes (Other)
  Sender: FDA-Public Use
  Company Number: JP-ROCHE-2088240

PATIENT
  Sex: Female

DRUGS (3)
  1. TRASTUZUMAB. [Suspect]
     Active Substance: TRASTUZUMAB
     Indication: HER-2 POSITIVE BREAST CANCER
     Dosage: ON DAY 1 OF THE FIRST CYCLE
     Route: 041
  2. TRASTUZUMAB. [Suspect]
     Active Substance: TRASTUZUMAB
     Dosage: ON DAY 1 OF THE SUBSEQUENT CYCLES
     Route: 041
  3. TS-1 [Suspect]
     Active Substance: GIMERACIL\OTERACIL\TEGAFUR
     Indication: HER-2 POSITIVE BREAST CANCER
     Dosage: BASED ON BODY SURFACE AREA (BSA) TWICE A DAY FOR 14 CONSECUTIVE DAYS IN A REPEATING 3-WEEK CYCLE (2
     Route: 048

REACTIONS (1)
  - Hyperglycaemia [Unknown]
